FAERS Safety Report 22242403 (Version 3)
Quarter: 2023Q2

REPORT INFORMATION
  Report Type: Spontaneous
  Country: GB (occurrence: GB)
  Receive Date: 20230422
  Receipt Date: 20230526
  Transmission Date: 20230722
  Serious: Yes (Other)
  Sender: FDA-Public Use
  Company Number: None

PATIENT
  Age: 69 Year
  Sex: Male
  Weight: 84.05 kg

DRUGS (16)
  1. BEVACIZUMAB [Suspect]
     Active Substance: BEVACIZUMAB
     Indication: Hepatocellular carcinoma
     Dosage: 1200 MILLIGRAM
     Route: 065
     Dates: start: 20220302
  2. ATEZOLIZUMAB [Suspect]
     Active Substance: ATEZOLIZUMAB
     Indication: Hepatocellular carcinoma
     Dosage: 1200 MILLIGRAM
     Route: 042
     Dates: start: 20220302
  3. COCODAMOL [Concomitant]
     Active Substance: ACETAMINOPHEN\CODEINE PHOSPHATE
  4. FINASTERIDE [Concomitant]
     Active Substance: FINASTERIDE
     Route: 065
  5. GLICLAZIDE [Concomitant]
     Active Substance: GLICLAZIDE
     Dosage: UNK UNK, BID
     Route: 065
     Dates: start: 20220703
  6. LACTULOSE [Concomitant]
     Active Substance: LACTULOSE
     Dosage: UNK
     Route: 065
  7. MAGNESIUM CITRATE [Concomitant]
     Active Substance: MAGNESIUM CITRATE
     Dosage: UNK
     Route: 065
     Dates: start: 20220707
  8. ACETAMINOPHEN [Concomitant]
     Active Substance: ACETAMINOPHEN
  9. PREGABALIN [Concomitant]
     Active Substance: PREGABALIN
     Route: 065
  10. PROPRANOLOL [Concomitant]
     Active Substance: PROPRANOLOL HYDROCHLORIDE
  11. ALBUTEROL [Concomitant]
     Active Substance: ALBUTEROL
  12. CARVEDILOL [Concomitant]
     Active Substance: CARVEDILOL
     Dosage: UNK UNK, QD
     Route: 065
     Dates: start: 20220615
  13. HYDROCORTISONE [Concomitant]
     Active Substance: HYDROCORTISONE
     Dosage: UNK UNK, QD
     Route: 065
     Dates: start: 20221104
  14. LANSOPRAZOLE [Concomitant]
     Active Substance: LANSOPRAZOLE
     Dosage: UNK UNK, QD
     Route: 065
     Dates: start: 20220708
  15. SIMVASTATIN [Concomitant]
     Active Substance: SIMVASTATIN
     Dosage: UNK UNK, QD
     Route: 065
  16. SPIRONOLACTONE [Concomitant]
     Active Substance: SPIRONOLACTONE
     Dosage: UNK UNK, QD
     Route: 065
     Dates: start: 20220611

REACTIONS (4)
  - Bone cancer [Not Recovered/Not Resolved]
  - Hyperglycaemia [Not Recovered/Not Resolved]
  - Arthralgia [Not Recovered/Not Resolved]
  - Muscle spasms [Not Recovered/Not Resolved]

NARRATIVE: CASE EVENT DATE: 20230322
